FAERS Safety Report 16388916 (Version 2)
Quarter: 2019Q3

REPORT INFORMATION
  Report Type: Report from Study
  Country: CA (occurrence: CA)
  Receive Date: 20190604
  Receipt Date: 20190731
  Transmission Date: 20191004
  Serious: Yes (Other)
  Sender: FDA-Public Use
  Company Number: CA-JNJFOC-20190542658

PATIENT
  Age: 64 Year
  Sex: Female
  Weight: 88 kg

DRUGS (2)
  1. DICLOFENAC SODIUM/MISOPROSTOL [Concomitant]
     Active Substance: DICLOFENAC SODIUM\MISOPROSTOL
     Dosage: STRENGTH-50 MG/200 MCG PRN (PER REQUIRED NECESSARY).
     Route: 065
  2. SIMPONI [Suspect]
     Active Substance: GOLIMUMAB
     Indication: RHEUMATOID ARTHRITIS
     Route: 058

REACTIONS (2)
  - Lower respiratory tract infection [Unknown]
  - Viral infection [Recovered/Resolved]

NARRATIVE: CASE EVENT DATE: 20190515
